FAERS Safety Report 7255935-1 (Version None)
Quarter: 2011Q1

REPORT INFORMATION
  Report Type: 
  Country: None (occurrence: None)
  Receive Date: 20110129
  Receipt Date: 20100516
  Transmission Date: 20110831
  Serious: Yes (Other)
  Sender: FDA-Public Use
  Company Number: US-ABBOTT-10P-163-0645604-00

PATIENT
  Sex: Female
  Weight: 108.96 kg

DRUGS (4)
  1. XALATAN [Concomitant]
     Indication: PRODUCT USED FOR UNKNOWN INDICATION
  2. HUMIRA [Suspect]
     Indication: EYE INFLAMMATION
     Route: 058
     Dates: start: 20090701
  3. ACONOPRED EYE DROPS [Concomitant]
     Indication: PRODUCT USED FOR UNKNOWN INDICATION
     Route: 047
  4. TIMOLOL [Concomitant]
     Indication: PRODUCT USED FOR UNKNOWN INDICATION
     Route: 047

REACTIONS (4)
  - SINUSITIS [None]
  - COUGH [None]
  - RASH [None]
  - CARCINOID TUMOUR PULMONARY [None]
